FAERS Safety Report 8806545 (Version 5)
Quarter: 2013Q2

REPORT INFORMATION
  Report Type: Report from Study
  Country: US (occurrence: US)
  Receive Date: 20120925
  Receipt Date: 20130503
  Transmission Date: 20140414
  Serious: Yes (Hospitalization)
  Sender: FDA-Public Use
  Company Number: US-JNJFOC-20120908780

PATIENT
  Age: 16 Year
  Sex: Male
  Weight: 67.4 kg

DRUGS (4)
  1. REMICADE [Suspect]
     Indication: COLITIS ULCERATIVE
     Route: 042
     Dates: start: 20110420
  2. PREDNISONE [Concomitant]
  3. FLAGYL [Concomitant]
     Route: 042
  4. ZOSYN [Concomitant]

REACTIONS (1)
  - Colitis ulcerative [Recovered/Resolved]
